FAERS Safety Report 7211767-1 (Version None)
Quarter: 2011Q1

REPORT INFORMATION
  Report Type: 
  Country: None (occurrence: None)
  Receive Date: 20110105
  Receipt Date: 20101223
  Transmission Date: 20110831
  Serious: Yes (Other)
  Sender: FDA-Public Use
  Company Number: IN-WATSON-2010-16595

PATIENT
  Age: 76 Year
  Sex: Male

DRUGS (3)
  1. TIMOLOL (WATSON LABORATORIES) [Suspect]
     Indication: GLAUCOMA
     Dosage: UNK
     Route: 047
  2. DORZOLAMIDE [Suspect]
     Indication: GLAUCOMA
     Dosage: UNK
     Route: 047
  3. ATENOLOL [Suspect]
     Indication: HYPERTENSION
     Dosage: 25 MG, DAILY

REACTIONS (2)
  - DRUG INTERACTION [None]
  - CHOROIDAL DETACHMENT [None]
